FAERS Safety Report 11324709 (Version 1)
Quarter: 2015Q3

REPORT INFORMATION
  Report Type: Spontaneous
  Country: US (occurrence: US)
  Receive Date: 20150730
  Receipt Date: 20150730
  Transmission Date: 20151125
  Serious: Yes (Hospitalization)
  Sender: FDA-Public Use
  Company Number: US-DYAX CORP.-2015DX000345

PATIENT
  Age: 85 Year
  Sex: Female
  Weight: 81.72 kg

DRUGS (2)
  1. KALBITOR [Suspect]
     Active Substance: ECALLANTIDE
     Route: 058
     Dates: start: 2011
  2. KALBITOR [Suspect]
     Active Substance: ECALLANTIDE
     Indication: HEREDITARY ANGIOEDEMA
     Route: 058
     Dates: start: 201507, end: 201507

REACTIONS (6)
  - Soft tissue infection [Recovering/Resolving]
  - Skin disorder [Recovering/Resolving]
  - Pyrexia [Recovering/Resolving]
  - Rash macular [Recovering/Resolving]
  - Chills [Recovering/Resolving]
  - Tinea pedis [Recovering/Resolving]

NARRATIVE: CASE EVENT DATE: 201506
